FAERS Safety Report 12977238 (Version 1)
Quarter: 2016Q4

REPORT INFORMATION
  Report Type: Spontaneous
  Country: GB (occurrence: GB)
  Receive Date: 20161128
  Receipt Date: 20161128
  Transmission Date: 20170207
  Serious: Yes (Disabling)
  Sender: FDA-Public Use
  Company Number: GB-ACCORD-045833

PATIENT
  Age: 74 Year
  Sex: Male
  Weight: 82 kg

DRUGS (12)
  1. FUROSEMIDE. [Concomitant]
     Active Substance: FUROSEMIDE
     Dosage: TAKE 2 IN MORNING,  1 AT 2 PM
     Dates: start: 20120104
  2. DIGOXIN. [Concomitant]
     Active Substance: DIGOXIN
     Dates: start: 20130520
  3. LANSOPRAZOLE. [Concomitant]
     Active Substance: LANSOPRAZOLE
     Dates: start: 20120727
  4. WARFARIN [Concomitant]
     Active Substance: WARFARIN
     Dosage: AS DIRECTED
     Dates: start: 20120110
  5. COZAAR [Concomitant]
     Active Substance: LOSARTAN POTASSIUM
     Dates: start: 20160919
  6. SPIRONOLACTONE. [Concomitant]
     Active Substance: SPIRONOLACTONE
     Dates: start: 20120104
  7. TAMSULOSIN [Concomitant]
     Active Substance: TAMSULOSIN
     Dates: start: 20150914
  8. SIMVASTATIN. [Suspect]
     Active Substance: SIMVASTATIN
     Indication: PRODUCT USED FOR UNKNOWN INDICATION
     Dates: start: 20140922
  9. ATORVASTATIN [Concomitant]
     Active Substance: ATORVASTATIN
     Dates: start: 20161103
  10. LOSARTAN. [Concomitant]
     Active Substance: LOSARTAN
     Dates: start: 20160210, end: 20160919
  11. ACULAR [Concomitant]
     Active Substance: KETOROLAC TROMETHAMINE
     Dates: start: 20160907
  12. BISOPROLOL [Concomitant]
     Active Substance: BISOPROLOL
     Dates: start: 20160120

REACTIONS (2)
  - Insomnia [Recovering/Resolving]
  - Burning feet syndrome [Recovering/Resolving]

NARRATIVE: CASE EVENT DATE: 20141107
